FAERS Safety Report 9405764 (Version 1)
Quarter: 2013Q3

REPORT INFORMATION
  Report Type: Spontaneous
  Country: US (occurrence: US)
  Receive Date: 20130717
  Receipt Date: 20130717
  Transmission Date: 20140515
  Serious: No
  Sender: FDA-Public Use
  Company Number: US-BAUSCH-BL-2012-000499

PATIENT
  Age: 28 Year
  Sex: Female

DRUGS (2)
  1. BESIVANCE (BESIFLOXACIN OPHTHALMIC SUSPENSION) 0.6% [Suspect]
     Indication: POSTOPERATIVE CARE
     Route: 047
     Dates: start: 20111216
  2. ACUVAIL [Concomitant]

REACTIONS (4)
  - Off label use [Not Recovered/Not Resolved]
  - Impaired healing [Not Recovered/Not Resolved]
  - Eye pain [Unknown]
  - Vision blurred [Not Recovered/Not Resolved]
